FAERS Safety Report 10367380 (Version 1)
Quarter: 2014Q3

REPORT INFORMATION
  Report Type: Spontaneous
  Country: US (occurrence: None)
  Receive Date: 20140805
  Receipt Date: 20140805
  Transmission Date: 20150326
  Serious: Yes (Hospitalization)
  Sender: FDA-Public Use
  Company Number: None

PATIENT
  Age: 52 Year
  Sex: Female

DRUGS (1)
  1. HERBAL NOS [Suspect]
     Active Substance: HERBALS
     Indication: RHEUMATOID ARTHRITIS
     Dates: start: 20120515, end: 20120517

REACTIONS (6)
  - International normalised ratio abnormal [None]
  - Nausea [None]
  - Encephalopathy [None]
  - Abdominal discomfort [None]
  - Abdominal pain [None]
  - Drug-induced liver injury [None]

NARRATIVE: CASE EVENT DATE: 20120614
